FAERS Safety Report 5471532-2 (Version None)
Quarter: 2007Q3

REPORT INFORMATION
  Report Type: 
  Country: None (occurrence: None)
  Receive Date: 20070928
  Receipt Date: 20070314
  Transmission Date: 20080115
  Serious: No
  Sender: FDA-Public Use
  Company Number: US-BRISTOL-MYERS SQUIBB COMPANY-13620323

PATIENT
  Age: 57 Year
  Sex: Female

DRUGS (9)
  1. DEFINITY [Suspect]
     Indication: ECHOCARDIOGRAM
     Route: 042
     Dates: start: 20061204, end: 20061201
  2. INSULIN [Concomitant]
  3. SYNTHROID [Concomitant]
  4. PROTONIX [Concomitant]
  5. COREG [Concomitant]
  6. BENICAR [Concomitant]
  7. LASIX [Concomitant]
  8. LIPITOR [Concomitant]
  9. HYDRALAZINE HCL [Concomitant]

REACTIONS (2)
  - AGITATION [None]
  - BACK PAIN [None]
